FAERS Safety Report 9482029 (Version 2)
Quarter: 2013Q3

REPORT INFORMATION
  Report Type: Spontaneous
  Country: US (occurrence: US)
  Receive Date: 20130828
  Receipt Date: 20130916
  Transmission Date: 20140515
  Serious: Yes (Life-Threatening, Hospitalization, Other)
  Sender: FDA-Public Use
  Company Number: US-009507513-1308USA012107

PATIENT
  Age: 67 Year
  Sex: Male

DRUGS (7)
  1. JANUVIA [Suspect]
     Indication: DIABETES MELLITUS
     Dosage: 100 MG, FREQUENCY UNSPECIFIED
     Route: 048
     Dates: start: 201108, end: 20130626
  2. METFORMIN [Concomitant]
  3. NORVASC [Concomitant]
  4. LIPITOR [Concomitant]
  5. PRINIVIL [Concomitant]
  6. PRILOSEC [Concomitant]
  7. LEVEMIR [Concomitant]
     Indication: DIABETES MELLITUS
     Dosage: FLEXPEN
     Dates: start: 2013

REACTIONS (2)
  - Pancreatic carcinoma [Not Recovered/Not Resolved]
  - Blood glucose increased [Unknown]
